FAERS Safety Report 21349580 (Version 1)
Quarter: 2022Q3

REPORT INFORMATION
  Report Type: Spontaneous
  Country: US (occurrence: None)
  Receive Date: 20220916
  Receipt Date: 20220916
  Transmission Date: 20221026
  Serious: Yes (Other)
  Sender: FDA-Public Use
  Company Number: None

PATIENT
  Age: 63 Year
  Sex: Female
  Weight: 63.45 kg

DRUGS (6)
  1. ARMOUR THYROID [Suspect]
     Active Substance: THYROID, PORCINE
     Indication: Hypothyroidism
     Dosage: OTHER QUANTITY : 6 TABLET(S);?FREQUENCY : DAILY;?
     Route: 048
  2. Thyroid 15 mg (porcine) capsule [Concomitant]
     Indication: Hypothyroidism
     Dosage: OTHER QUANTITY : OTHER QUANTITY : 6 CAPSULE(S);?FREQUENCY : DAILY;?;?OTHER QUANTITY : 6 CAPSULE(S);?
     Route: 048
     Dates: start: 20220904, end: 20220916
  3. ATIVAN [Concomitant]
     Active Substance: LORAZEPAM
  4. HC/ACETAMINOPHEN [Concomitant]
  5. ADVIL [Concomitant]
  6. BENADRYL [Concomitant]

REACTIONS (8)
  - Panic attack [None]
  - Rash pruritic [None]
  - Urticaria [None]
  - Headache [None]
  - Anti-thyroid antibody [None]
  - Laboratory test abnormal [None]
  - Product compounding quality issue [None]
  - Product substitution issue [None]

NARRATIVE: CASE EVENT DATE: 20220705
